FAERS Safety Report 15956145 (Version 1)
Quarter: 2019Q1

REPORT INFORMATION
  Report Type: Spontaneous
  Country: US (occurrence: US)
  Receive Date: 20190213
  Receipt Date: 20190213
  Transmission Date: 20190417
  Serious: No
  Sender: FDA-Public Use
  Company Number: US-DRREDDYS-USA/USA/19/0107670

PATIENT
  Age: 34 Year
  Sex: Female
  Weight: 57 kg

DRUGS (8)
  1. HABITROL [Suspect]
     Active Substance: NICOTINE
     Route: 062
     Dates: start: 20190206, end: 20190206
  2. HABITROL [Suspect]
     Active Substance: NICOTINE
     Route: 062
     Dates: start: 20190207, end: 20190207
  3. VITAMIN D [Concomitant]
     Active Substance: CHOLECALCIFEROL
     Indication: VITAMIN SUPPLEMENTATION
  4. HABITROL [Suspect]
     Active Substance: NICOTINE
     Route: 062
     Dates: start: 20190203, end: 20190203
  5. LORAZEPAM. [Concomitant]
     Active Substance: LORAZEPAM
     Indication: ANXIETY
  6. HABITROL [Suspect]
     Active Substance: NICOTINE
     Indication: ELECTRONIC CIGARETTE USER
     Route: 062
     Dates: start: 20190202, end: 20190202
  7. HABITROL [Suspect]
     Active Substance: NICOTINE
     Route: 062
     Dates: start: 20190204, end: 20190204
  8. HABITROL [Suspect]
     Active Substance: NICOTINE
     Route: 062
     Dates: start: 20190208, end: 20190208

REACTIONS (10)
  - Nausea [Unknown]
  - Product dose omission [Unknown]
  - Agitation [Unknown]
  - Product use in unapproved indication [Unknown]
  - Withdrawal syndrome [Unknown]
  - Anxiety [Unknown]
  - Heart rate increased [Unknown]
  - Malaise [Unknown]
  - Inappropriate schedule of product administration [Unknown]
  - Nervousness [Unknown]

NARRATIVE: CASE EVENT DATE: 20190202
